FAERS Safety Report 4422643-1 (Version None)
Quarter: 2004Q3

REPORT INFORMATION
  Report Type: 
  Country: None (occurrence: None)
  Receive Date: 20040713
  Receipt Date: 20030814
  Transmission Date: 20050211
  Serious: No
  Sender: FDA-Public Use
  Company Number: PHEH2003US03186

PATIENT
  Age: 80 Year
  Sex: Female
  Weight: 77.2 kg

DRUGS (10)
  1. ELIDEL [Suspect]
     Dosage: BID, TOPICAL
     Route: 061
     Dates: start: 20030412
  2. COLACE [Concomitant]
  3. DARVOCET [Concomitant]
  4. PREDNISONE [Concomitant]
  5. NORVASC [Concomitant]
  6. ZESTRIL [Concomitant]
  7. OFLOXACIN [Concomitant]
  8. TOBRADEX [Concomitant]
  9. POTASSIUM (POTASSIUM) [Concomitant]
  10. DICLOXACILLIN [Concomitant]

REACTIONS (1)
  - VISION BLURRED [None]
